FAERS Safety Report 4430678-8 (Version None)
Quarter: 2004Q3

REPORT INFORMATION
  Report Type: 
  Country: None (occurrence: None)
  Receive Date: 20040819
  Receipt Date: 20040819
  Transmission Date: 20050211
  Serious: Yes (Hospitalization)
  Sender: FDA-Public Use
  Company Number: None

PATIENT
  Sex: Female
  Weight: 73.1198 kg

DRUGS (9)
  1. VICODIN [Suspect]
     Indication: INFREQUENT BOWEL MOVEMENTS
     Dosage: 5/500 2 TAB Q 4 HOURS PRN
     Dates: end: 20040617
  2. IRON SUPPLEMENT (GEROUS GLUCONATE) [Suspect]
     Dosage: 325 MG 1 TID
     Dates: end: 20040617
  3. LISINOPRIL [Concomitant]
  4. SIMVASTATIN [Concomitant]
  5. FUROSEMIDE [Concomitant]
  6. METOCLOPRAMIDE [Concomitant]
  7. METOPROLOL [Concomitant]
  8. KCL TAB [Concomitant]
  9. ASPIRIN [Concomitant]

REACTIONS (3)
  - INFREQUENT BOWEL MOVEMENTS [None]
  - NAUSEA [None]
  - VOMITING [None]
